FAERS Safety Report 11474166 (Version 1)
Quarter: 2015Q3

REPORT INFORMATION
  Report Type: Spontaneous
  Country: US (occurrence: None)
  Receive Date: 20150902
  Receipt Date: 20150902
  Transmission Date: 20151125
  Serious: Yes (Hospitalization)
  Sender: FDA-Public Use
  Company Number: A-NJ2015-117932

PATIENT
  Age: 57 Year
  Sex: Male

DRUGS (2)
  1. VELETRI [Suspect]
     Active Substance: EPOPROSTENOL
     Indication: PULMONARY ARTERIAL HYPERTENSION
     Dosage: 71 NG/KG, PER MIN, INTRAVENOUS
     Route: 042
     Dates: start: 20101101
  2. WARFARIN [Concomitant]
     Active Substance: WARFARIN

REACTIONS (7)
  - Dyspnoea [None]
  - Fluid retention [None]
  - Oedema [None]
  - Pericardial effusion [None]
  - Acute respiratory failure [None]
  - Fluid overload [None]
  - Cardiac failure [None]
